FAERS Safety Report 22141158 (Version 1)
Quarter: 2023Q1

REPORT INFORMATION
  Report Type: Spontaneous
  Country: FR (occurrence: FR)
  Receive Date: 20230327
  Receipt Date: 20230327
  Transmission Date: 20230418
  Serious: Yes (Other)
  Sender: FDA-Public Use
  Company Number: FR-009507513-1902FRA011913

PATIENT
  Age: 70 Year
  Sex: Male

DRUGS (2)
  1. PEMBROLIZUMAB [Suspect]
     Active Substance: PEMBROLIZUMAB
     Indication: Malignant neoplasm progression
     Dosage: 2 MILLIGRAM/KILOGRAM, Q3W
     Route: 042
  2. PEMBROLIZUMAB [Suspect]
     Active Substance: PEMBROLIZUMAB
     Indication: Metastatic malignant melanoma
     Dosage: 2 MILLIGRAM/KILOGRAM, Q3W
     Route: 042

REACTIONS (2)
  - Mitochondrial myopathy acquired [Unknown]
  - Therapy partial responder [Not Recovered/Not Resolved]
